FAERS Safety Report 12198134 (Version 2)
Quarter: 2016Q2

REPORT INFORMATION
  Report Type: Spontaneous
  Country: US (occurrence: US)
  Receive Date: 20160322
  Receipt Date: 20160429
  Transmission Date: 20160815
  Serious: No
  Sender: FDA-Public Use
  Company Number: US-JNJFOC-20160203550

PATIENT
  Age: 60 Year
  Sex: Female
  Weight: 52.16 kg

DRUGS (3)
  1. ESTROGEN [Concomitant]
     Active Substance: ESTRONE\SUS SCROFA OVARY
     Route: 065
     Dates: start: 1984
  2. TERAZOL 7 [Suspect]
     Active Substance: TERCONAZOLE
     Indication: FUNGAL INFECTION
     Route: 067
     Dates: start: 20160208
  3. TERAZOL 7 [Suspect]
     Active Substance: TERCONAZOLE
     Indication: FUNGAL INFECTION
     Route: 067
     Dates: start: 20160202, end: 201602

REACTIONS (5)
  - Incorrect dose administered [Unknown]
  - Poor quality drug administered [Unknown]
  - Product quality issue [Unknown]
  - Drug ineffective [Unknown]
  - Discomfort [Unknown]

NARRATIVE: CASE EVENT DATE: 201602
